FAERS Safety Report 4641125-5 (Version None)
Quarter: 2005Q2

REPORT INFORMATION
  Report Type: 
  Country: None (occurrence: None)
  Receive Date: 20050419
  Receipt Date: 20050419
  Transmission Date: 20051028
  Serious: Yes (Hospitalization)
  Sender: FDA-Public Use
  Company Number: None

PATIENT
  Age: 61 Year
  Sex: Female
  Weight: 57.1532 kg

DRUGS (5)
  1. HYDROCHLOROTHIAZIDE [Suspect]
     Indication: NEPHROLITHIASIS
     Dosage: 1 X DAILY A.M. ORAL
     Route: 048
     Dates: start: 20041229, end: 20041231
  2. LIPITOR [Concomitant]
  3. EVISTA [Concomitant]
  4. LO-DOSE ASPIRIN [Concomitant]
  5. MULTIVITAMIN [Concomitant]

REACTIONS (4)
  - ASTHENIA [None]
  - DIZZINESS [None]
  - LOSS OF CONSCIOUSNESS [None]
  - VOMITING [None]
